FAERS Safety Report 5945261-2 (Version None)
Quarter: 2008Q4

REPORT INFORMATION
  Report Type: 
  Country: None (occurrence: None)
  Receive Date: 20081107
  Receipt Date: 20081103
  Transmission Date: 20090506
  Serious: Yes (Death, Hospitalization)
  Sender: FDA-Public Use
  Company Number: FR-BRISTOL-MYERS SQUIBB COMPANY-14393987

PATIENT
  Age: 84 Year
  Sex: Female

DRUGS (5)
  1. HYDREA [Suspect]
     Route: 048
  2. NICARDIPINE HCL [Suspect]
     Dosage: FORMULATION: CAPSULE
     Route: 048
  3. LASIX [Suspect]
     Dosage: FORMLATION: TABLET
     Route: 048
  4. PRAZEPAM [Suspect]
     Dosage: FORMULATION: TABLET
     Route: 048
  5. SPECIAFOLDINE [Suspect]
     Dosage: FORMULATION: TABLET
     Route: 048

REACTIONS (3)
  - ATAXIA [None]
  - DEATH [None]
  - DYSKINESIA [None]
